FAERS Safety Report 8758803 (Version 1)
Quarter: 2012Q4

REPORT INFORMATION
  Report Type: 
  Country: CA (occurrence: CA)
  Receive Date: 20120829
  Receipt Date: 20120829
  Transmission Date: 20130627
  Serious: Yes (Other)
  Sender: FDA-Public Use
  Company Number: CA-AMGEN-CANSP2012054189

PATIENT
  Age: 4 Month

DRUGS (2)
  1. ARANESP [Suspect]
     Indication: PRODUCT USED FOR UNKNOWN INDICATION
     Dosage: 1.4 mug/kg, qwk
     Dates: start: 201206
  2. VENOFER [Concomitant]

REACTIONS (3)
  - Haemoglobin decreased [Unknown]
  - Hypertension [Unknown]
  - Drug resistance [Unknown]
